FAERS Safety Report 4416719-2 (Version None)
Quarter: 2004Q3

REPORT INFORMATION
  Report Type: 
  Country: None (occurrence: None)
  Receive Date: 20040805
  Receipt Date: 20030428
  Transmission Date: 20050211
  Serious: Yes (Hospitalization, Other)
  Sender: FDA-Public Use
  Company Number: US-MERCK-0304USA02799

PATIENT
  Age: 76 Year
  Sex: Male
  Weight: 84 kg

DRUGS (8)
  1. TYLENOL [Concomitant]
     Route: 065
     Dates: start: 19900101
  2. ECOTRIN [Concomitant]
     Route: 065
     Dates: start: 19900101
  3. CELEBREX [Concomitant]
     Route: 065
     Dates: start: 20010101
  4. ADVIL [Concomitant]
     Route: 065
     Dates: start: 19900101
  5. VIOXX [Suspect]
     Indication: ARTHRALGIA
     Route: 048
     Dates: start: 20010116, end: 20010418
  6. VIAGRA [Concomitant]
     Route: 065
  7. ZOCOR [Concomitant]
     Route: 065
  8. CALAN [Concomitant]
     Route: 065
     Dates: start: 19750101

REACTIONS (24)
  - AORTIC ANEURYSM [None]
  - ARTERIOVENOUS FISTULA, ACQUIRED [None]
  - ARTHROPATHY [None]
  - BUNDLE BRANCH BLOCK LEFT [None]
  - CALCINOSIS [None]
  - CHEST DISCOMFORT [None]
  - CORONARY ARTERY DISEASE [None]
  - DEHYDRATION [None]
  - DIVERTICULUM INTESTINAL HAEMORRHAGIC [None]
  - EMOTIONAL DISTRESS [None]
  - GASTRITIS ATROPHIC [None]
  - GASTROOESOPHAGEAL REFLUX DISEASE [None]
  - HELICOBACTER INFECTION [None]
  - INTERVERTEBRAL DISC DEGENERATION [None]
  - INTERVERTEBRAL DISC PROTRUSION [None]
  - NECK PAIN [None]
  - NEUROPATHY PERIPHERAL [None]
  - OTITIS EXTERNA [None]
  - RENAL CYST [None]
  - ROTATOR CUFF SYNDROME [None]
  - SCIATICA [None]
  - SCOLIOSIS [None]
  - SPINAL COLUMN STENOSIS [None]
  - STENT OCCLUSION [None]
